FAERS Safety Report 5153769-5 (Version None)
Quarter: 2006Q4

REPORT INFORMATION
  Report Type: 
  Country: None (occurrence: None)
  Receive Date: 20061120
  Receipt Date: 20060503
  Transmission Date: 20070319
  Serious: Yes (Hospitalization)
  Sender: FDA-Public Use
  Company Number: US-ELI_LILLY_AND_COMPANY-US200611003163

PATIENT
  Sex: Female
  Weight: 69.841 kg

DRUGS (3)
  1. ZYPREXA [Suspect]
     Indication: BIPOLAR DISORDER
     Dates: start: 20030101, end: 20040101
  2. DEPAKOTE [Concomitant]
     Dates: start: 20020101, end: 20050101
  3. METFORMIN [Concomitant]
     Dates: start: 20020101, end: 20050101

REACTIONS (4)
  - CARDIAC DISORDER [None]
  - CONDITION AGGRAVATED [None]
  - DIABETES MELLITUS [None]
  - HYPERGLYCAEMIA [None]
